FAERS Safety Report 8526240 (Version 2)
Quarter: 2013Q3

REPORT INFORMATION
  Report Type: Spontaneous
  Country: US (occurrence: US)
  Receive Date: 20120423
  Receipt Date: 20130909
  Transmission Date: 20140515
  Serious: Yes (Hospitalization)
  Sender: FDA-Public Use
  Company Number: US-BRISTOL-MYERS SQUIBB COMPANY-16517450

PATIENT
  Age: 32 Year
  Sex: Male
  Weight: 79.36 kg

DRUGS (2)
  1. ABILIFY [Suspect]
     Indication: BIPOLAR I DISORDER
     Dosage: PROBABLY 5 MG ONCE DAILY;REDUCED TO 2MG
     Dates: start: 201007, end: 201105
  2. DEPAKOTE [Suspect]

REACTIONS (4)
  - Pancreatic pseudocyst [Recovering/Resolving]
  - Pneumonia [Unknown]
  - Blood triglycerides increased [Unknown]
  - Blood glucose increased [Recovered/Resolved]
